FAERS Safety Report 23550523 (Version 4)
Quarter: 2024Q2

REPORT INFORMATION
  Report Type: Spontaneous
  Country: US (occurrence: US)
  Receive Date: 20240221
  Receipt Date: 20240412
  Transmission Date: 20240716
  Serious: Yes (Other)
  Sender: FDA-Public Use
  Company Number: US-APELLIS PHARMACEUTICALS-APL-2024-003907

PATIENT
  Age: 68 Year
  Sex: Female

DRUGS (2)
  1. SYFOVRE [Suspect]
     Active Substance: PEGCETACOPLAN
     Indication: Dry age-related macular degeneration
     Dosage: 15 MILLIGRAM
     Dates: start: 20240119, end: 20240119
  2. VITAMINS [Concomitant]
     Active Substance: VITAMINS
     Indication: Product used for unknown indication

REACTIONS (6)
  - Anterior segment neovascularisation [Unknown]
  - Visual impairment [Recovering/Resolving]
  - Retinal occlusive vasculitis [Recovering/Resolving]
  - Retinal haemorrhage [Recovering/Resolving]
  - Intraocular pressure increased [Recovering/Resolving]
  - Uveitis [Unknown]

NARRATIVE: CASE EVENT DATE: 20240128
